FAERS Safety Report 17913384 (Version 1)
Quarter: 2020Q2

REPORT INFORMATION
  Report Type: Spontaneous
  Country: US (occurrence: US)
  Receive Date: 20200618
  Receipt Date: 20200618
  Transmission Date: 20200714
  Serious: No
  Sender: FDA-Public Use
  Company Number: US-THERAPEUTICSMD-2020TMD01865

PATIENT
  Age: 65 Year
  Sex: Female
  Weight: 81.63 kg

DRUGS (4)
  1. IMVEXXY [Suspect]
     Active Substance: ESTRADIOL
     Indication: VULVOVAGINAL INFLAMMATION
  2. IMVEXXY [Suspect]
     Active Substance: ESTRADIOL
     Indication: HORMONE LEVEL ABNORMAL
  3. IMVEXXY [Suspect]
     Active Substance: ESTRADIOL
     Indication: VULVOVAGINAL ERYTHEMA
     Dosage: 10 ?G, 1X/DAY IN THE MORNING AND REMAINED UPRIGHT
     Route: 067
     Dates: start: 20200414
  4. KEFLEX [Concomitant]
     Active Substance: CEPHALEXIN

REACTIONS (5)
  - Vaginal haemorrhage [Not Recovered/Not Resolved]
  - Urinary incontinence [Unknown]
  - Off label use [Not Recovered/Not Resolved]
  - Vaginal discharge [Not Recovered/Not Resolved]
  - Cough [Unknown]

NARRATIVE: CASE EVENT DATE: 20200414
